FAERS Safety Report 21440641 (Version 1)
Quarter: 2022Q4

REPORT INFORMATION
  Report Type: Spontaneous
  Country: US (occurrence: US)
  Receive Date: 20221011
  Receipt Date: 20221011
  Transmission Date: 20230112
  Serious: Yes (Hospitalization)
  Sender: FDA-Public Use
  Company Number: US-BRISTOL-MYERS SQUIBB COMPANY-2022-116308

PATIENT
  Age: 73 Year
  Sex: Male

DRUGS (1)
  1. REVLIMID [Suspect]
     Active Substance: LENALIDOMIDE
     Indication: Plasma cell myeloma
     Dosage: 15 MG 1 CAPSULE BY MOUTH EVERY OTHER DAY ON DAYS 1-14 IN 21 DAY CYCLE
     Route: 048
     Dates: start: 20220831

REACTIONS (2)
  - Large intestine infection [Unknown]
  - Off label use [Unknown]
